FAERS Safety Report 18971747 (Version 1)
Quarter: 2021Q1

REPORT INFORMATION
  Report Type: Spontaneous
  Country: CA (occurrence: CA)
  Receive Date: 20210305
  Receipt Date: 20210305
  Transmission Date: 20210420
  Serious: Yes (Hospitalization, Other)
  Sender: FDA-Public Use
  Company Number: CA-ABBVIE-21K-028-3795019-00

PATIENT
  Sex: Male

DRUGS (1)
  1. RINVOQ [Suspect]
     Active Substance: UPADACITINIB
     Indication: PRODUCT USED FOR UNKNOWN INDICATION
     Route: 048

REACTIONS (10)
  - Pain in extremity [Unknown]
  - Limb injury [Unknown]
  - Respiratory failure [Unknown]
  - Pneumonia [Unknown]
  - Gas gangrene [Unknown]
  - Renal failure [Unknown]
  - Haemosiderin stain [Unknown]
  - Sepsis [Unknown]
  - Nail growth abnormal [Unknown]
  - Osteomyelitis [Unknown]
